FAERS Safety Report 15735200 (Version 1)
Quarter: 2018Q4

REPORT INFORMATION
  Report Type: Spontaneous
  Country: US (occurrence: US)
  Receive Date: 20181218
  Receipt Date: 20181218
  Transmission Date: 20190205
  Serious: Yes (Life-Threatening, Hospitalization)
  Sender: FDA-Public Use
  Company Number: US-ASTRAZENECA-2018SF62092

PATIENT
  Age: 48 Year
  Sex: Female

DRUGS (3)
  1. OMEPRAZOLE. [Suspect]
     Active Substance: OMEPRAZOLE
     Dosage: 10-15 20MG CAPSULES
     Route: 048
  2. WARFARIN [Concomitant]
     Active Substance: WARFARIN
  3. SULFAMETHOXAZOLE-TRIMETHOPRIM [Concomitant]
     Active Substance: SULFAMETHOXAZOLE\TRIMETHOPRIM
     Indication: INFECTION PROPHYLAXIS

REACTIONS (5)
  - Intentional overdose [Unknown]
  - Abdominal pain upper [Recovered/Resolved]
  - Lipase increased [Unknown]
  - Suicide attempt [Unknown]
  - Chest pain [Unknown]
